FAERS Safety Report 20170543 (Version 1)
Quarter: 2021Q4

REPORT INFORMATION
  Report Type: Spontaneous
  Country: US (occurrence: None)
  Receive Date: 20211209
  Receipt Date: 20211209
  Transmission Date: 20220303
  Serious: Yes (Hospitalization)
  Sender: FDA-Public Use
  Company Number: None

PATIENT
  Age: 57 Year
  Sex: Male

DRUGS (18)
  1. COSENTYX [Suspect]
     Active Substance: SECUKINUMAB
     Indication: Psoriatic arthropathy
     Dosage: FREQUENCY : MONTHLY;?
     Route: 058
     Dates: start: 20210212
  2. ASPIRIN [Concomitant]
     Active Substance: ASPIRIN
  3. CARVEDIDILOL [Concomitant]
  4. CLOPIDOGREAL [Concomitant]
  5. UNSPECIFIED INGREDIENT [Concomitant]
     Active Substance: UNSPECIFIED INGREDIENT
  6. BENZAPRINE [Concomitant]
  7. FLECAINIDE [Concomitant]
     Active Substance: FLECAINIDE
  8. FOLIC ACID [Concomitant]
     Active Substance: FOLIC ACID
  9. HYDROXYCO/APAP [Concomitant]
  10. HYDROXXYZ PAM [Concomitant]
  11. LIDOCAINE [Concomitant]
     Active Substance: LIDOCAINE
  12. LOSARTAN POTASSIUM [Concomitant]
     Active Substance: LOSARTAN POTASSIUM
  13. METHOTREXATE [Concomitant]
     Active Substance: METHOTREXATE
  14. MONTELUKAST [Concomitant]
     Active Substance: MONTELUKAST SODIUM
  15. OXYCODONE [Concomitant]
     Active Substance: OXYCODONE
  16. SYMBICORT AER [Concomitant]
  17. TAMSULOSIN [Concomitant]
     Active Substance: TAMSULOSIN
  18. TESTOSTERONE CYPIONATE [Concomitant]
     Active Substance: TESTOSTERONE CYPIONATE

REACTIONS (2)
  - Tuberculosis [None]
  - Therapy interrupted [None]

NARRATIVE: CASE EVENT DATE: 20210415
